FAERS Safety Report 16101472 (Version 1)
Quarter: 2019Q1

REPORT INFORMATION
  Report Type: Spontaneous
  Country: US (occurrence: US)
  Receive Date: 20190321
  Receipt Date: 20190321
  Transmission Date: 20190418
  Serious: No
  Sender: FDA-Public Use
  Company Number: US-ADAMAS PHARMA, LLC-2018ADA03098

PATIENT
  Age: 74 Year
  Sex: Male
  Weight: 76.19 kg

DRUGS (13)
  1. SUPER B COMPLEX [Concomitant]
     Active Substance: CYANOCOBALAMIN\DEXPANTHENOL\NIACINAMIDE\PYRIDOXINE HYDROCHLORIDE\RIBOFLAVIN 5^-PHOSPHATE SODIUM\THIAMINE HYDROCHLORIDE\VITAMIN B COMPLEX
  2. ALEVE [Concomitant]
     Active Substance: NAPROXEN SODIUM
     Dosage: ALTERNATES 2 DAYS OF ALEVE AND THEN ONE DAY OF NAPROXEN
  3. NAPROXEN. [Concomitant]
     Active Substance: NAPROXEN
     Dosage: ALTERNATES 2 DAYS OF ALEVE AND THEN ONE DAY OF NAPROXEN
  4. ASPIRIN. [Concomitant]
     Active Substance: ASPIRIN
  5. MULTIVITAMIN [Concomitant]
     Active Substance: VITAMINS
  6. COQ10 [Concomitant]
     Active Substance: UBIDECARENONE
  7. VITAMIN D [Concomitant]
     Active Substance: CHOLECALCIFEROL
  8. GOCOVRI [Suspect]
     Active Substance: AMANTADINE
     Indication: DYSKINESIA
     Dosage: 137 MG, 1X/DAY AT BEDTIME
     Dates: start: 20181130, end: 20181206
  9. DEEP BRAIN STIMULATOR [Concomitant]
  10. VITAMIN E [Concomitant]
     Active Substance: .ALPHA.-TOCOPHEROL
  11. GOCOVRI [Suspect]
     Active Substance: AMANTADINE
     Dosage: 274 MG, 1X/DAY AT BEDTIME
     Dates: start: 20181207, end: 20181213
  12. GOCOVRI [Suspect]
     Active Substance: AMANTADINE
     Dosage: UNK
     Dates: start: 20181214, end: 201812
  13. GINKGO BILOBA [Concomitant]
     Active Substance: GINKGO

REACTIONS (5)
  - Abnormal dreams [Recovered/Resolved]
  - Mouth injury [Unknown]
  - Gait inability [Recovered/Resolved]
  - Loss of personal independence in daily activities [Recovered/Resolved]
  - Asthenia [Recovering/Resolving]

NARRATIVE: CASE EVENT DATE: 201812
